FAERS Safety Report 9704394 (Version 1)
Quarter: 2013Q4

REPORT INFORMATION
  Report Type: Spontaneous
  Country: US (occurrence: US)
  Receive Date: 20131122
  Receipt Date: 20131122
  Transmission Date: 20140711
  Serious: No
  Sender: FDA-Public Use
  Company Number: US-MYLANLABS-2013S1004070

PATIENT
  Age: 69 Year
  Sex: Male
  Weight: 72.58 kg

DRUGS (2)
  1. CLONAZEPAM TABLETS, USP [Suspect]
     Indication: ANXIETY
     Route: 048
     Dates: start: 20130213
  2. CLONAZEPAM TABLETS, USP [Suspect]
     Indication: OFF LABEL USE
     Route: 048
     Dates: start: 20130213

REACTIONS (3)
  - Drug ineffective for unapproved indication [Not Recovered/Not Resolved]
  - Anxiety [Not Recovered/Not Resolved]
  - Dry throat [Not Recovered/Not Resolved]
